FAERS Safety Report 16779380 (Version 2)
Quarter: 2020Q1

REPORT INFORMATION
  Report Type: Spontaneous
  Country: US (occurrence: US)
  Receive Date: 20190906
  Receipt Date: 20200323
  Transmission Date: 20200409
  Serious: No
  Sender: FDA-Public Use
  Company Number: US-GLENMARK PHARMACEUTICALS-2019GMK042147

PATIENT

DRUGS (3)
  1. NITROGLYCERIN SUBLINGUAL TABLETS USP 0.4 MG [Suspect]
     Active Substance: NITROGLYCERIN
     Indication: PROPHYLAXIS
     Dosage: 1 DF, OD
     Route: 048
     Dates: start: 20190707
  2. NITROGLYCERIN SUBLINGUAL TABLETS USP 0.4 MG [Suspect]
     Active Substance: NITROGLYCERIN
     Dosage: 1 DF, OD
     Route: 048
     Dates: start: 2019
  3. NITROGLYCERIN SUBLINGUAL TABLETS USP 0.4 MG [Suspect]
     Active Substance: NITROGLYCERIN
     Indication: ANGINA PECTORIS
     Dosage: 1 DF, OD
     Route: 048
     Dates: start: 201906

REACTIONS (4)
  - Headache [Unknown]
  - Product physical issue [Unknown]
  - Product quality issue [Unknown]
  - Drug ineffective [Unknown]
